FAERS Safety Report 8317573-9 (Version None)
Quarter: 2012Q2

REPORT INFORMATION
  Report Type: 
  Country: None (occurrence: None)
  Receive Date: 20120427
  Receipt Date: 20110715
  Transmission Date: 20120825
  Serious: No
  Sender: FDA-Public Use
  Company Number: US-GLAXOSMITHKLINE-A0937407A

PATIENT
  Age: 78 Year
  Sex: Female

DRUGS (2)
  1. ZOFRAN [Suspect]
     Indication: VOMITING
     Route: 065
  2. CINRYZE [Suspect]
     Indication: ANGIOEDEMA
     Dosage: 1000UNIT THREE TIMES PER WEEK
     Route: 042
     Dates: start: 20060101

REACTIONS (6)
  - GASTRIC DISORDER [None]
  - NAUSEA [None]
  - DRUG INEFFECTIVE [None]
  - VOMITING [None]
  - ABDOMINAL DISTENSION [None]
  - RASH [None]
